FAERS Safety Report 11637888 (Version 3)
Quarter: 2017Q3

REPORT INFORMATION
  Report Type: Report from Study
  Country: US (occurrence: US)
  Receive Date: 20151016
  Receipt Date: 20170728
  Transmission Date: 20171127
  Serious: No
  Sender: FDA-Public Use
  Company Number: US-AMNEAL PHARMACEUTICALS-2015AMN00109

PATIENT
  Age: 54 Year
  Sex: Female
  Weight: 77.98 kg

DRUGS (1)
  1. TRAMADOL HYDROCHLORIDE. [Suspect]
     Active Substance: TRAMADOL HYDROCHLORIDE
     Indication: PAIN
     Dosage: 1 TABLETS, 3X/DAY
     Route: 048
     Dates: start: 2012

REACTIONS (10)
  - Neck pain [Unknown]
  - Ear pain [Unknown]
  - Miosis [Unknown]
  - Product taste abnormal [Unknown]
  - Throat irritation [Not Recovered/Not Resolved]
  - Abdominal pain [Unknown]
  - Arthralgia [Unknown]
  - Drug ineffective [Unknown]
  - Pancreatitis [Unknown]
  - Product coating issue [Unknown]

NARRATIVE: CASE EVENT DATE: 20160115
